FAERS Safety Report 19275884 (Version 2)
Quarter: 2021Q3

REPORT INFORMATION
  Report Type: Spontaneous
  Country: GB (occurrence: GB)
  Receive Date: 20210519
  Receipt Date: 20210709
  Transmission Date: 20211014
  Serious: Yes (Hospitalization)
  Sender: FDA-Public Use
  Company Number: GB-MYLANLABS-2021M1028713

PATIENT
  Age: 56 Year
  Sex: Male

DRUGS (14)
  1. PRAVASTATIN. [Suspect]
     Active Substance: PRAVASTATIN
     Indication: PRODUCT USED FOR UNKNOWN INDICATION
     Dosage: AT NIGHT.
  2. ASPIRIN                            /00002701/ [Concomitant]
     Active Substance: ASPIRIN
     Dosage: 75 MILLIGRAM, AM (IN THE MORNING.)
     Dates: start: 20201229
  3. CIPROFLOXACIN. [Suspect]
     Active Substance: CIPROFLOXACIN
     Indication: PRODUCT USED FOR UNKNOWN INDICATION
     Dosage: FOR TWO WEEKS
     Route: 048
     Dates: start: 20201224
  4. SILDENAFIL. [Concomitant]
     Active Substance: SILDENAFIL
     Dosage: 100 MILLIGRAM (AS INSTRUCTED (MDU))
  5. TAMSULOSIN [Concomitant]
     Active Substance: TAMSULOSIN
     Dosage: 400 MICROGRAM, QD
  6. METRONIDAZOLE. [Concomitant]
     Active Substance: METRONIDAZOLE
     Dosage: 400 MILLIGRAM, TID (WITH MEALS. FOR TWO WEEKS.)
     Route: 048
     Dates: start: 20201224
  7. PREGABALIN. [Concomitant]
     Active Substance: PREGABALIN
     Dosage: 150 MILLIGRAM, BID
  8. FLUCONAZOLE. [Concomitant]
     Active Substance: FLUCONAZOLE
     Dosage: 200 MILLIGRAM, AM (IN THE MORNING.)
     Route: 048
     Dates: start: 20201224
  9. LANSOPRAZOLE. [Concomitant]
     Active Substance: LANSOPRAZOLE
     Dosage: 15 MILLIGRAM, AM (EVERY MORNING.)
  10. OXYCODONE [Concomitant]
     Active Substance: OXYCODONE
     Dosage: 5 MILLIGRAM, QID (AS REQUIRED.)
     Dates: start: 20201224
  11. THIAMINE. [Concomitant]
     Active Substance: THIAMINE
     Dosage: 100 MILLIGRAM, TID
     Dates: start: 20201224
  12. ADCAL D3 [Concomitant]
     Active Substance: CALCIUM CARBONATE\CHOLECALCIFEROL
     Dosage: 2 DOSAGE FORM, BID (750MG/200UNIT   )
  13. PARACETAMOL [Concomitant]
     Active Substance: ACETAMINOPHEN
     Dosage: 1 GRAM, QID (AS REQUIRED.)
  14. VITAMIN B COMPOUND                 /00171501/ [Concomitant]
     Dosage: 1 DOSAGE FORM, TID
     Dates: start: 20201224

REACTIONS (2)
  - Pain in extremity [Unknown]
  - Tendonitis [Unknown]
